FAERS Safety Report 21741430 (Version 1)
Quarter: 2022Q4

REPORT INFORMATION
  Report Type: Spontaneous
  Country: US (occurrence: US)
  Receive Date: 20221216
  Receipt Date: 20221216
  Transmission Date: 20230113
  Serious: Yes (Other)
  Sender: FDA-Public Use
  Company Number: US-FreseniusKabi-FK202217973

PATIENT
  Sex: Male

DRUGS (5)
  1. DEXAMETHASONE [Suspect]
     Active Substance: DEXAMETHASONE
     Indication: Product used for unknown indication
     Dosage: 2 DOSES 12 HOURS APART
  2. DEXAMETHASONE [Suspect]
     Active Substance: DEXAMETHASONE
     Dosage: 0.25 MG/KG 12 HOURS LATER
  3. DEXAMETHASONE [Suspect]
     Active Substance: DEXAMETHASONE
  4. GENTAMICIN [Concomitant]
     Active Substance: GENTAMICIN
     Indication: Product used for unknown indication
  5. NAFCILLIN [Concomitant]
     Active Substance: NAFCILLIN SODIUM
     Indication: Product used for unknown indication

REACTIONS (3)
  - Cardiogenic shock [Recovered/Resolved]
  - Hypertrophic cardiomyopathy [Recovered/Resolved]
  - Hypertension [Unknown]
